FAERS Safety Report 8758241 (Version 2)
Quarter: 2012Q4

REPORT INFORMATION
  Report Type: Spontaneous
  Country: JP (occurrence: None)
  Receive Date: 20120816
  Receipt Date: 20120905
  Transmission Date: 20130627
  Serious: Yes (Hospitalization)
  Sender: FDA-Public Use
  Company Number: JP-20120042

PATIENT
  Age: 7 Decade
  Sex: Male

DRUGS (2)
  1. LIPIODOL (ETHIODIZED OIL) (ETHIODIZED OIL) [Suspect]
     Indication: TRANSCATHETER ARTERIAL EMBOLIZATION
     Route: 013
  2. CISPLATIN [Suspect]
     Indication: TRANSCATHETER ARTERIAL EMBOLIZATION
     Dosage: (70 mg, 1 in 1 total)
     Route: 013

REACTIONS (5)
  - Jaundice cholestatic [None]
  - Off label use [None]
  - Hepatic enzyme increased [None]
  - Abdominal pain upper [None]
  - Tumour necrosis [None]
